FAERS Safety Report 5345519-4 (Version None)
Quarter: 2007Q2

REPORT INFORMATION
  Report Type: 
  Country: None (occurrence: None)
  Receive Date: 20070601
  Receipt Date: 20070601
  Transmission Date: 20071010
  Serious: No
  Sender: FDA-Public Use
  Company Number: None

PATIENT
  Age: 37 Year
  Sex: Female
  Weight: 53.978 kg

DRUGS (1)
  1. MAG-OX 400 MG [Suspect]
     Indication: MUSCLE SPASMS
     Dosage: 1 TABLET DAILY PO
     Route: 048
     Dates: start: 20070501, end: 20070531

REACTIONS (2)
  - ACTIVITIES OF DAILY LIVING IMPAIRED [None]
  - FATIGUE [None]
